FAERS Safety Report 5234283-5 (Version None)
Quarter: 2007Q1

REPORT INFORMATION
  Report Type: 
  Country: None (occurrence: None)
  Receive Date: 20070209
  Receipt Date: 20070205
  Transmission Date: 20070707
  Serious: Yes (Death, Life-Threatening, Hospitalization, Other)
  Sender: FDA-Public Use
  Company Number: PHBS2007JP00890

PATIENT
  Age: 81 Year
  Sex: Male

DRUGS (13)
  1. TOFISOPAM [Concomitant]
     Dosage: 150 MG/D
     Route: 048
     Dates: start: 20051112
  2. HIBON [Concomitant]
     Indication: SEBORRHOEIC DERMATITIS
     Dosage: 60 MG/D
     Route: 048
     Dates: start: 20060331, end: 20061101
  3. FUJISMIN [Concomitant]
     Indication: SEBORRHOEIC DERMATITIS
     Dosage: 90 MG/D
     Route: 048
     Dates: start: 20060331, end: 20061101
  4. NITOROL [Concomitant]
     Indication: ATRIAL FIBRILLATION
     Dosage: 15 MG/D
     Route: 048
     Dates: start: 20051112
  5. MAGNESIUM OXIDE [Concomitant]
     Indication: CONSTIPATION
     Dosage: 2 G/D
     Route: 048
     Dates: start: 20051112
  6. CLARITHROMYCIN [Concomitant]
     Dosage: 200 MG/D
     Route: 048
     Dates: start: 20060916
  7. EPINASTINE HYDROCHLORIDE [Concomitant]
     Dosage: 20 MG/D
     Route: 048
     Dates: start: 20060916
  8. LAMISIL [Suspect]
     Indication: NAIL TINEA
     Dosage: 125 MG/D
     Route: 048
     Dates: start: 20061111, end: 20061225
  9. WARFARIN POTASSIUM [Interacting]
     Indication: CEREBRAL INFARCTION
     Dosage: 2.5 MG/D
     Route: 048
     Dates: start: 20051112
  10. VITAMIN B6 [Concomitant]
     Route: 048
  11. VITAMIN B-12 [Concomitant]
     Route: 048
  12. CELESTONE [Concomitant]
     Indication: SEBORRHOEIC DERMATITIS
     Dosage: 2 DF/D
     Route: 048
     Dates: start: 20061104
  13. SOLON [Concomitant]
     Indication: SEBORRHOEIC DERMATITIS
     Dosage: 1 G/D
     Route: 048
     Dates: start: 20061104

REACTIONS (33)
  - ALANINE AMINOTRANSFERASE INCREASED [None]
  - ASPARTATE AMINOTRANSFERASE INCREASED [None]
  - BACTERAEMIA [None]
  - BACTERIAL INFECTION [None]
  - BLOOD ALKALINE PHOSPHATASE INCREASED [None]
  - BLOOD BILIRUBIN INCREASED [None]
  - BLOOD BILIRUBIN UNCONJUGATED INCREASED [None]
  - BLOOD CREATININE INCREASED [None]
  - BLOOD PRESSURE DECREASED [None]
  - BLOOD UREA INCREASED [None]
  - C-REACTIVE PROTEIN INCREASED [None]
  - CHOLESTASIS [None]
  - DRUG INTERACTION [None]
  - GAMMA-GLUTAMYLTRANSFERASE INCREASED [None]
  - HAEMATOCRIT DECREASED [None]
  - HAEMODIALYSIS [None]
  - HAEMOGLOBIN DECREASED [None]
  - HEART RATE DECREASED [None]
  - HEPATIC ENCEPHALOPATHY [None]
  - JAUNDICE [None]
  - LIVER DISORDER [None]
  - LYMPHOCYTE STIMULATION TEST POSITIVE [None]
  - MELAENA [None]
  - METABOLIC ACIDOSIS [None]
  - MICTURITION DISORDER [None]
  - PROTHROMBIN LEVEL DECREASED [None]
  - RED BLOOD CELL COUNT DECREASED [None]
  - RENAL FAILURE [None]
  - RESPIRATORY ACIDOSIS [None]
  - RESPIRATORY DISORDER [None]
  - SEPTIC SHOCK [None]
  - TACHYPNOEA [None]
  - WHITE BLOOD CELL COUNT INCREASED [None]
